FAERS Safety Report 5060648-0 (Version None)
Quarter: 2006Q3

REPORT INFORMATION
  Report Type: 
  Country: None (occurrence: None)
  Receive Date: 20060725
  Receipt Date: 20060630
  Transmission Date: 20061208
  Serious: Yes (Hospitalization)
  Sender: FDA-Public Use
  Company Number: US-AMGEN-US185224

PATIENT
  Sex: Female

DRUGS (6)
  1. ENBREL [Suspect]
     Indication: RHEUMATOID ARTHRITIS
     Route: 058
     Dates: start: 20021001, end: 20060306
  2. METHOTREXATE [Concomitant]
     Dates: start: 19870101, end: 20050101
  3. LASIX [Concomitant]
  4. CLONAZEPAM [Concomitant]
  5. FOLIC ACID [Concomitant]
  6. PREDNISONE [Concomitant]

REACTIONS (1)
  - CHOLELITHIASIS [None]
